FAERS Safety Report 18064977 (Version 1)
Quarter: 2020Q3

REPORT INFORMATION
  Report Type: Spontaneous
  Country: PL (occurrence: PL)
  Receive Date: 20200724
  Receipt Date: 20200724
  Transmission Date: 20201103
  Serious: Yes (Other)
  Sender: FDA-Public Use
  Company Number: PL-GLAXOSMITHKLINE-PL2020139743

PATIENT
  Age: 22 Year
  Sex: Female

DRUGS (9)
  1. LACOSAMIDE. [Interacting]
     Active Substance: LACOSAMIDE
     Dosage: 450 MG, QD(450 MG, PER DAY   )
     Route: 065
  2. LAMOTRIGINE. [Interacting]
     Active Substance: LAMOTRIGINE
     Indication: PRODUCT USED FOR UNKNOWN INDICATION
     Dosage: 300 MG, QD (300 MILLIGRAM, DAILY)
     Route: 065
  3. SERTRALINE [Suspect]
     Active Substance: SERTRALINE HYDROCHLORIDE
     Indication: DEPRESSED MOOD
     Dosage: 50 MG, QD (50 MILLIGRAM, IN THE MORNING)
     Route: 065
  4. LACOSAMIDE. [Interacting]
     Active Substance: LACOSAMIDE
     Indication: EPILEPSY
     Dosage: 300 MG, QD (300 MILLIGRAM, DAILY)
     Route: 065
  5. LAMOTRIGINE. [Suspect]
     Active Substance: LAMOTRIGINE
     Indication: EPILEPSY
     Dosage: 200 MG, QD (200 MILLIGRAM, DAILY   )
     Route: 065
  6. LEVETIRACETAM. [Suspect]
     Active Substance: LEVETIRACETAM
     Indication: PRODUCT USED FOR UNKNOWN INDICATION
     Dosage: 2500 MG, QD (2500 MG, PER DAY)
     Route: 065
  7. LACOSAMIDE. [Interacting]
     Active Substance: LACOSAMIDE
     Indication: EPILEPSY
     Dosage: 500 MG, QD (500 MG, PER DAY)
     Route: 065
  8. LAMOTRIGINE. [Interacting]
     Active Substance: LAMOTRIGINE
     Dosage: 250 MG, QD (250 MILLIGRAM, DAILY   )
     Route: 065
  9. LEVETIRACETAM. [Suspect]
     Active Substance: LEVETIRACETAM
     Indication: EPILEPSY
     Dosage: 1500 MG, QD (1500 MILLIGRAM, DAILY )
     Route: 065

REACTIONS (7)
  - Drug interaction [Recovered/Resolved]
  - Diplopia [Unknown]
  - Dizziness [Unknown]
  - Therapeutic product effect incomplete [Unknown]
  - Neurotoxicity [Recovered/Resolved]
  - Seizure [Recovering/Resolving]
  - Off label use [Unknown]
